FAERS Safety Report 12148142 (Version 1)
Quarter: 2016Q1

REPORT INFORMATION
  Report Type: Spontaneous
  Country: US (occurrence: US)
  Receive Date: 20160304
  Receipt Date: 20160304
  Transmission Date: 20160526
  Serious: Yes (Other)
  Sender: FDA-Public Use
  Company Number: US-BAYER-2016-038177

PATIENT
  Age: 48 Year
  Sex: Female

DRUGS (6)
  1. OMEPRAZOLE. [Concomitant]
     Active Substance: OMEPRAZOLE
  2. ALKA-SELTZER HEARTBURN RELIEFCHEWS COOL MINT [Suspect]
     Active Substance: CALCIUM CARBONATE
     Indication: DYSPEPSIA
     Dosage: UNK UNK, PRN
     Route: 048
     Dates: start: 20160224, end: 20160224
  3. SIMVASTATIN. [Concomitant]
     Active Substance: SIMVASTATIN
  4. LISINOPRIL. [Concomitant]
     Active Substance: LISINOPRIL
  5. HYDROCHLOROTHIAZIDE. [Concomitant]
     Active Substance: HYDROCHLOROTHIAZIDE
  6. COREG [Concomitant]
     Active Substance: CARVEDILOL

REACTIONS (4)
  - Retinitis pigmentosa [Recovering/Resolving]
  - Vision blurred [Recovering/Resolving]
  - Product use issue [None]
  - Eye irritation [Recovering/Resolving]

NARRATIVE: CASE EVENT DATE: 20160224
